FAERS Safety Report 9259266 (Version 1)
Quarter: 2013Q2

REPORT INFORMATION
  Report Type: Spontaneous
  Country: US (occurrence: US)
  Receive Date: 20130426
  Receipt Date: 20130426
  Transmission Date: 20140414
  Serious: Yes (Other)
  Sender: FDA-Public Use
  Company Number: US-ABBOTT-13P-163-1081648-00

PATIENT
  Sex: Female

DRUGS (6)
  1. DEPAKOTE ER [Suspect]
     Indication: CONVULSION
     Dates: start: 199807
  2. DEPAKOTE ER [Suspect]
     Dates: end: 199807
  3. TEGRETOL XR [Concomitant]
     Indication: CONVULSION
     Dosage: 2 TABS IN AM, 3 TABS AT NIGHT
     Dates: start: 199807
  4. TEGRETOL XR [Concomitant]
     Dates: end: 199807
  5. FOLIC ACID [Concomitant]
     Indication: PRODUCT USED FOR UNKNOWN INDICATION
  6. PRENATAL VITAMINS [Concomitant]
     Indication: PRODUCT USED FOR UNKNOWN INDICATION

REACTIONS (1)
  - Stillbirth [Unknown]
